FAERS Safety Report 7674075-0 (Version None)
Quarter: 2011Q3

REPORT INFORMATION
  Report Type: 
  Country: None (occurrence: None)
  Receive Date: 20110810
  Receipt Date: 20110804
  Transmission Date: 20111222
  Serious: Yes (Death)
  Sender: FDA-Public Use
  Company Number: JP-SHIRE-SPV1-2010-00434

PATIENT

DRUGS (18)
  1. CINACALCET HYDROCHLORIDE [Concomitant]
     Dosage: 50 MG, UNKNOWN
     Dates: start: 20100223, end: 20101214
  2. LANTHANUM CARBONATE [Suspect]
     Indication: HYPERPHOSPHATAEMIA
     Dosage: 750 MG, UNKNOWN
     Route: 048
     Dates: start: 20090516, end: 20091024
  3. LANSOPRAZOLE [Concomitant]
     Indication: HYPERCHLORHYDRIA
     Dosage: 15 MG, UNKNOWN
     Route: 048
  4. CARVEDILOL [Concomitant]
     Indication: PRODUCT USED FOR UNKNOWN INDICATION
     Dosage: 2.5 MG, UNKNOWN
     Route: 048
  5. EPADEL [Concomitant]
     Indication: LIPIDS ABNORMAL
     Dosage: 900 MG, UNKNOWN
     Route: 048
  6. VASOLAN                            /00014302/ [Concomitant]
     Indication: ARRHYTHMIA
     Dosage: 120 MG, UNKNOWN
     Route: 048
  7. RENAGEL [Concomitant]
     Dosage: 1500 MG, UNK
     Route: 048
     Dates: start: 20090516, end: 20091023
  8. ALOSENN                            /00476901/ [Concomitant]
     Indication: CONSTIPATION
     Dosage: 1 G, UNKNOWN
     Route: 048
  9. DIGOXIN [Concomitant]
     Indication: ARRHYTHMIA
     Dosage: .125 MG, UNK
     Route: 048
  10. ALLOZYM [Concomitant]
     Indication: HYPERURICAEMIA
     Dosage: 100 MG, UNKNOWN
     Route: 048
  11. LANTHANUM CARBONATE [Suspect]
     Dosage: 1250 MG, UNKNOWN
     Route: 048
     Dates: start: 20091024
  12. RENAGEL [Concomitant]
     Dosage: 50 MG, UNK
     Route: 048
     Dates: start: 20100223
  13. CINACALCET HYDROCHLORIDE [Concomitant]
     Indication: HYPERPARATHYROIDISM SECONDARY
     Dosage: 25 MG, UNKNOWN
     Route: 048
     Dates: start: 20090516, end: 20100223
  14. RENAGEL [Concomitant]
     Indication: HYPERPHOSPHATAEMIA
     Dosage: 4250 MG, UNKNOWN
     Route: 048
  15. ASPIRIN [Concomitant]
     Indication: THROMBOSIS PROPHYLAXIS
     Dosage: 100 MG, UNKNOWN
     Route: 048
  16. TSUMURA-SHAKUYAKU-KANZO-TO [Concomitant]
     Indication: PRODUCT USED FOR UNKNOWN INDICATION
     Dosage: 5 G, UNKNOWN
     Route: 048
  17. OXAROL [Concomitant]
     Indication: HYPERPARATHYROIDISM SECONDARY
     Dosage: 2.5 ?G, UNKNOWN
     Route: 042
     Dates: start: 20100223, end: 20101214
  18. PLESTAZOL [Concomitant]
     Indication: THROMBOSIS PROPHYLAXIS
     Dosage: 100 MG, UNKNOWN
     Route: 048

REACTIONS (3)
  - HAEMORRHOIDAL HAEMORRHAGE [None]
  - HYPERPARATHYROIDISM SECONDARY [None]
  - ACUTE MYOCARDIAL INFARCTION [None]
